FAERS Safety Report 17156527 (Version 6)
Quarter: 2020Q1

REPORT INFORMATION
  Report Type: Report from Study
  Country: BE (occurrence: BE)
  Receive Date: 20191216
  Receipt Date: 20200127
  Transmission Date: 20200409
  Serious: Yes (Hospitalization, Other)
  Sender: FDA-Public Use
  Company Number: BE-BEH-2019110479

PATIENT
  Age: 9 Year
  Sex: Male
  Weight: 31 kg

DRUGS (6)
  1. NANOGAM [Suspect]
     Active Substance: HUMAN IMMUNOGLOBULIN G
     Dosage: UNK
     Route: 042
     Dates: start: 20191211
  2. HIZENTRA [Suspect]
     Active Substance: HUMAN IMMUNOGLOBULIN G
     Indication: GENE MUTATION
     Dosage: 3 GRAM, QW
     Route: 058
     Dates: start: 20191208, end: 20200107
  3. HIZENTRA [Suspect]
     Active Substance: HUMAN IMMUNOGLOBULIN G
     Dosage: UNK
     Route: 058
  4. HIZENTRA [Suspect]
     Active Substance: HUMAN IMMUNOGLOBULIN G
     Dosage: UNK
     Route: 058
  5. HIZENTRA [Suspect]
     Active Substance: HUMAN IMMUNOGLOBULIN G
     Dosage: UNK
     Route: 058
     Dates: start: 20191208, end: 20191208
  6. HIZENTRA [Suspect]
     Active Substance: HUMAN IMMUNOGLOBULIN G
     Dosage: UNK
     Route: 058
     Dates: start: 20191208, end: 20191208

REACTIONS (11)
  - Pain in extremity [Recovering/Resolving]
  - Burning sensation [Recovering/Resolving]
  - No adverse event [Unknown]
  - Product use in unapproved indication [Unknown]
  - Meningoencephalitis viral [Recovering/Resolving]
  - Feeling hot [Recovered/Resolved]
  - Hallucination [Recovering/Resolving]
  - Injection site pain [Unknown]
  - Myalgia [Recovered/Resolved]
  - Headache [Recovering/Resolving]
  - Injection site nerve damage [Recovered/Resolved]

NARRATIVE: CASE EVENT DATE: 20191208
